FAERS Safety Report 12269928 (Version 1)
Quarter: 2016Q2

REPORT INFORMATION
  Report Type: Report from Study
  Country: US (occurrence: US)
  Receive Date: 20160415
  Receipt Date: 20160415
  Transmission Date: 20160815
  Serious: No
  Sender: FDA-Public Use
  Company Number: US-AMGEN-USASL2016045726

PATIENT
  Age: 55 Year
  Sex: Female
  Weight: 54.42 kg

DRUGS (1)
  1. ENBREL [Suspect]
     Active Substance: ETANERCEPT
     Indication: RHEUMATOID ARTHRITIS
     Dosage: 50 MG, QWK
     Route: 065
     Dates: start: 2010

REACTIONS (6)
  - Pain in extremity [Unknown]
  - Injection site pain [Unknown]
  - Gait disturbance [Unknown]
  - Swelling [Unknown]
  - Fear [Unknown]
  - Wrong technique in product usage process [Unknown]
